FAERS Safety Report 5483361-4 (Version None)
Quarter: 2007Q4

REPORT INFORMATION
  Report Type: 
  Country: None (occurrence: None)
  Receive Date: 20071012
  Receipt Date: 20071002
  Transmission Date: 20080405
  Serious: Yes (Other)
  Sender: FDA-Public Use
  Company Number: DE-JNJFOC-20071000439

PATIENT
  Sex: Male
  Weight: 85 kg

DRUGS (6)
  1. PREZISTA [Suspect]
     Indication: HIV INFECTION
     Route: 048
  2. NORVIR [Concomitant]
     Indication: HIV INFECTION
     Route: 048
  3. TRUVADA [Concomitant]
     Indication: HIV INFECTION
     Route: 065
  4. PREDNISOLONE [Concomitant]
     Indication: HIV INFECTION
     Route: 048
  5. METOPROLOL TARTRATE [Concomitant]
     Indication: HYPERTENSION
     Route: 048
  6. OMEPRAZOLE [Concomitant]
     Indication: GASTRITIS
     Route: 048

REACTIONS (6)
  - CHEST PAIN [None]
  - HYPERTENSION [None]
  - PARAESTHESIA [None]
  - RESTLESSNESS [None]
  - TACHYCARDIA [None]
  - TINNITUS [None]
